FAERS Safety Report 19485216 (Version 2)
Quarter: 2021Q3

REPORT INFORMATION
  Report Type: Spontaneous
  Country: US (occurrence: US)
  Receive Date: 20210702
  Receipt Date: 20210706
  Transmission Date: 20211014
  Serious: Yes (Other)
  Sender: FDA-Public Use
  Company Number: US-SA-2021SA216105

PATIENT
  Age: 77 Year
  Sex: Female

DRUGS (1)
  1. DULCOLAX (BISACODYL) [Suspect]
     Active Substance: BISACODYL
     Dosage: UNK
     Route: 065

REACTIONS (3)
  - Choking [Unknown]
  - Product size issue [Unknown]
  - Drug ineffective [Unknown]
